FAERS Safety Report 8530111-0 (Version None)
Quarter: 2012Q3

REPORT INFORMATION
  Report Type: 
  Country: None (occurrence: None)
  Receive Date: 20120723
  Receipt Date: 20120716
  Transmission Date: 20120928
  Serious: Yes (Hospitalization)
  Sender: FDA-Public Use
  Company Number: US-BAYER-2012-072290

PATIENT
  Age: 36 Year
  Sex: Female

DRUGS (13)
  1. DROSPIRENONE AND ETHINYL ESTRADIOL [Suspect]
  2. METHYLPHENIDATE [Concomitant]
     Indication: ATTENTION DEFICIT/HYPERACTIVITY DISORDER
     Dosage: 36 MG, QD
     Route: 048
  3. BEYAZ [Suspect]
  4. IBUPROFEN [Concomitant]
     Dosage: 800 MGTHREE TIMES DAILY AS NEEDED.
     Route: 048
     Dates: start: 20120120
  5. NAPROXEN [Concomitant]
     Dosage: 500 MG, PRN
     Route: 048
  6. YAZ [Suspect]
  7. METFORMIN HYDROCHLORIDE [Concomitant]
     Dosage: 1000 MG, BID
     Route: 048
     Dates: start: 20110719
  8. CHLORHEXIDINE GLUCONATE [Concomitant]
     Dosage: RINSE WITH 1/2 OUNCE FOR 30 SECONDS THEN EXPECTORATE TWICE DAILY
     Dates: start: 20120120
  9. KOMBIGLYZE XR [Concomitant]
     Indication: TYPE 2 DIABETES MELLITUS
     Dosage: 2.5 / 1000 MG DAILY
     Route: 048
  10. YASMIN [Suspect]
  11. HYPERCARE [Concomitant]
     Dosage: UNK
     Route: 061
     Dates: start: 20111129
  12. DEXAMETHASONE W/TOBRAMYCIN [Concomitant]
     Dosage: 2 DROPS IN LEFT EYE THREE TIMES DAILY
     Route: 047
     Dates: start: 20111226
  13. AMOXICILLIN [Concomitant]
     Indication: GINGIVAL OPERATION
     Dosage: 500 MG, TID
     Route: 048

REACTIONS (2)
  - DEEP VEIN THROMBOSIS [None]
  - VENA CAVA THROMBOSIS [None]
